FAERS Safety Report 6612407-2 (Version None)
Quarter: 2010Q1

REPORT INFORMATION
  Report Type: 
  Country: None (occurrence: None)
  Receive Date: 20100303
  Receipt Date: 20100218
  Transmission Date: 20100710
  Serious: Yes (Hospitalization, Other)
  Sender: FDA-Public Use
  Company Number: PHHY2010AU06499

PATIENT
  Sex: Male

DRUGS (1)
  1. CLOZARIL [Suspect]
     Dosage: 475 MG, UNK
     Route: 048
     Dates: start: 20100204, end: 20100204

REACTIONS (6)
  - ACCIDENTAL EXPOSURE [None]
  - DYSPNOEA [None]
  - NEUTROPHIL COUNT INCREASED [None]
  - PALLOR [None]
  - TREMOR [None]
  - WHITE BLOOD CELL COUNT INCREASED [None]
